FAERS Safety Report 7784635-4 (Version None)
Quarter: 2011Q3

REPORT INFORMATION
  Report Type: 
  Country: None (occurrence: None)
  Receive Date: 20110928
  Receipt Date: 20110919
  Transmission Date: 20111222
  Serious: Yes (Hospitalization, Other)
  Sender: FDA-Public Use
  Company Number: US-BRISTOL-MYERS SQUIBB COMPANY-16073744

PATIENT
  Age: 64 Year
  Sex: Male

DRUGS (2)
  1. LOXAPINE [Suspect]
     Indication: PSYCHOTIC DISORDER
  2. ARIPIPRAZOLE [Suspect]
     Indication: HALLUCINATION, AUDITORY

REACTIONS (5)
  - PSYCHOTIC DISORDER [None]
  - HALLUCINATION, AUDITORY [None]
  - SALIVARY HYPERSECRETION [None]
  - SEDATION [None]
  - PARKINSONIAN REST TREMOR [None]
